FAERS Safety Report 4595875-X (Version None)
Quarter: 2005Q1

REPORT INFORMATION
  Report Type: 
  Country: None (occurrence: None)
  Receive Date: 20050224
  Receipt Date: 20050207
  Transmission Date: 20050727
  Serious: Yes (Other)
  Sender: FDA-Public Use
  Company Number: FR_050205779

PATIENT
  Age: 72 Year
  Sex: Female

DRUGS (3)
  1. PERGOLIDE MESYLATE [Suspect]
     Indication: PARKINSON'S DISEASE
     Dosage: 3 MG DAY
     Dates: start: 20001101
  2. STALEVO 100 [Concomitant]
  3. ANTIDEPRESSIVE DRUG [Concomitant]

REACTIONS (3)
  - AORTIC VALVE DISEASE [None]
  - CARDIAC FAILURE [None]
  - MITRAL VALVE DISEASE [None]
